FAERS Safety Report 4589226-4 (Version None)
Quarter: 2005Q1

REPORT INFORMATION
  Report Type: 
  Country: None (occurrence: None)
  Receive Date: 20050217
  Receipt Date: 20050217
  Transmission Date: 20050727
  Serious: Yes (Other)
  Sender: FDA-Public Use
  Company Number: None

PATIENT
  Sex: Male
  Weight: 82.3732 kg

DRUGS (5)
  1. FORMOTEROL FUMARATE  12MCG INHL CAP [Suspect]
     Indication: CHRONIC OBSTRUCTIVE PULMONARY DISEASE
     Dosage: 12 MCG INHL C BID RESPIRATOR
     Route: 055
     Dates: start: 20040317, end: 20050228
  2. ALBUTEROL [Concomitant]
  3. FLUTICASONE PROP [Concomitant]
  4. GUAIFENESIN [Concomitant]
  5. LORATAD [Concomitant]

REACTIONS (2)
  - DYSPHONIA [None]
  - DYSPNOEA [None]
